FAERS Safety Report 7222368-3 (Version None)
Quarter: 2010Q4

REPORT INFORMATION
  Report Type: 
  Country: None (occurrence: None)
  Receive Date: 20101126
  Receipt Date: 20100729
  Transmission Date: 20110411
  Serious: No
  Sender: FDA-Public Use
  Company Number: 311944

PATIENT
  Age: 67 Year
  Sex: Female

DRUGS (5)
  1. VICTOZA [Suspect]
     Indication: TYPE 2 DIABETES MELLITUS
     Dosage: 0.6 MG, QD, SUBCUTANEOUS
     Route: 058
  2. NOVOLOG [Concomitant]
  3. LEVEMIR [Concomitant]
  4. SYMLIN [Concomitant]
  5. FORTAMET [Concomitant]

REACTIONS (4)
  - ABDOMINAL DISCOMFORT [None]
  - DRY THROAT [None]
  - HEADACHE [None]
  - NAUSEA [None]
